FAERS Safety Report 10045819 (Version 1)
Quarter: 2014Q1

REPORT INFORMATION
  Report Type: Spontaneous
  Country: GB (occurrence: GB)
  Receive Date: 20140328
  Receipt Date: 20140328
  Transmission Date: 20141002
  Serious: Yes (Hospitalization)
  Sender: FDA-Public Use
  Company Number: PHHY2014GB034312

PATIENT
  Age: 16 Year
  Sex: Female

DRUGS (6)
  1. FELODIPINE [Suspect]
     Dosage: 280 MG, (3.3 MG/KG), UNK
     Route: 048
  2. FLUCLOXACILLIN [Suspect]
     Dosage: 3.5 G, (41 MG/KG) UNK
     Route: 048
  3. CINNARIZINE [Suspect]
     Dosage: 210 MG, (2.4 MG/KG) UNK
     Route: 048
  4. DOXAZOSIN [Suspect]
     Dosage: 28 MG, (0.33 MG/KG) UNK
     Route: 048
  5. BENDROFLUMETHIAZIDE [Suspect]
     Dosage: 70 MG, (0.81 MG/KG) UNK
     Route: 048
  6. ALCOHOL [Suspect]
     Route: 048

REACTIONS (10)
  - Hypotension [Recovered/Resolved]
  - Pallor [Recovered/Resolved]
  - Cold sweat [Recovered/Resolved]
  - Confusional state [Recovered/Resolved]
  - Agitation [Recovered/Resolved]
  - Aggression [Recovered/Resolved]
  - Circulatory collapse [Recovered/Resolved]
  - Sinus tachycardia [Recovered/Resolved]
  - Polyuria [Unknown]
  - Intentional overdose [Recovered/Resolved]
